FAERS Safety Report 25965723 (Version 1)
Quarter: 2025Q4

REPORT INFORMATION
  Report Type: Spontaneous
  Country: US (occurrence: US)
  Receive Date: 20251027
  Receipt Date: 20251027
  Transmission Date: 20260118
  Serious: No
  Sender: ANI
  Company Number: US-ANIPHARMA-2025-US-032863

PATIENT
  Age: 71 Year
  Sex: Female
  Weight: 58.97 kg

DRUGS (11)
  1. CORTICOTROPIN [Suspect]
     Active Substance: CORTICOTROPIN
     Indication: Rheumatoid arthritis
     Dosage: 80 UNITS TWICE WEEKLY
     Route: 058
     Dates: start: 20250616, end: 20250703
  2. TERCONAZOLE [Concomitant]
     Active Substance: TERCONAZOLE
  3. CARVEDILOL [Concomitant]
     Active Substance: CARVEDILOL
  4. METHOTREXATE [Concomitant]
     Active Substance: METHOTREXATE
  5. FOLIC ACID [Concomitant]
     Active Substance: FOLIC ACID
  6. PREDNISONE [Concomitant]
     Active Substance: PREDNISONE
  7. ARAVA [Interacting]
     Active Substance: LEFLUNOMIDE
  8. PLAQUENIL [Concomitant]
     Active Substance: HYDROXYCHLOROQUINE SULFATE
  9. HUMIRA [Concomitant]
     Active Substance: ADALIMUMAB
  10. RINVOQ [Concomitant]
     Active Substance: UPADACITINIB
  11. ENBREL [Concomitant]
     Active Substance: ETANERCEPT

REACTIONS (10)
  - Blood pressure increased [Recovered/Resolved]
  - Dyspepsia [Recovering/Resolving]
  - Headache [Recovering/Resolving]
  - Drug interaction [Unknown]
  - Contraindicated product administered [Recovered/Resolved]
  - Swelling face [Recovered/Resolved]
  - Peripheral swelling [Recovered/Resolved]
  - Pruritus [Recovered/Resolved]
  - Dizziness [Recovered/Resolved]
  - Disturbance in attention [Recovered/Resolved]

NARRATIVE: CASE EVENT DATE: 20250616
